FAERS Safety Report 19615257 (Version 1)
Quarter: 2021Q3

REPORT INFORMATION
  Report Type: Spontaneous
  Country: DE (occurrence: DE)
  Receive Date: 20210727
  Receipt Date: 20210727
  Transmission Date: 20211014
  Serious: Yes (Death, Hospitalization, Other)
  Sender: FDA-Public Use
  Company Number: DE-B.I. PHARMACEUTICALS,INC./RIDGEFIELD-2021-BI-117484

PATIENT
  Age: 86 Year
  Sex: Male
  Weight: 50 kg

DRUGS (3)
  1. PRADAXA [Suspect]
     Active Substance: DABIGATRAN ETEXILATE MESYLATE
     Indication: CEREBROVASCULAR ACCIDENT
     Dosage: 1?0?1
     Dates: start: 2015
  2. TORASEMID [Concomitant]
     Active Substance: TORSEMIDE
     Indication: PRODUCT USED FOR UNKNOWN INDICATION
     Dosage: 1?0?1, IF NECESSARY ALSO IN THE EVENING INTAKE
  3. TORASEMID [Concomitant]
     Active Substance: TORSEMIDE
     Dosage: 1?0?0, DAUERMEDIKATION

REACTIONS (9)
  - Disseminated intravascular coagulation [Fatal]
  - Mouth haemorrhage [Fatal]
  - Intestinal haemorrhage [Fatal]
  - Anal haemorrhage [Fatal]
  - Gastric haemorrhage [Fatal]
  - Waterhouse-Friderichsen syndrome [Fatal]
  - Septic shock [Fatal]
  - C-reactive protein increased [Fatal]
  - Multiple organ dysfunction syndrome [Fatal]

NARRATIVE: CASE EVENT DATE: 20210714
